FAERS Safety Report 19765042 (Version 9)
Quarter: 2022Q2

REPORT INFORMATION
  Report Type: Report from Study
  Country: US (occurrence: US)
  Receive Date: 20210830
  Receipt Date: 20220406
  Transmission Date: 20220721
  Serious: Yes (Other)
  Sender: FDA-Public Use
  Company Number: NVSC2021US195563

PATIENT
  Sex: Male

DRUGS (4)
  1. ENTRESTO [Suspect]
     Active Substance: SACUBITRIL\VALSARTAN
     Indication: Cardiac failure
     Dosage: 1 DOSAGE FORM, BID
     Route: 048
  2. ENTRESTO [Suspect]
     Active Substance: SACUBITRIL\VALSARTAN
     Indication: Cardiac failure chronic
     Dosage: 1.5 DOSAGE FORM (24/26 MG IN AM AND 1/2 IN PM)
     Route: 048
  3. ENTRESTO [Suspect]
     Active Substance: SACUBITRIL\VALSARTAN
     Dosage: UNK
     Route: 065
  4. ENTRESTO [Suspect]
     Active Substance: SACUBITRIL\VALSARTAN
     Dosage: UNK
     Route: 065

REACTIONS (20)
  - Myelopathy [Unknown]
  - Memory impairment [Unknown]
  - Balance disorder [Unknown]
  - Heart rate increased [Recovered/Resolved]
  - Feeling abnormal [Unknown]
  - Depression [Unknown]
  - Weight increased [Not Recovered/Not Resolved]
  - Rhinorrhoea [Unknown]
  - Muscle atrophy [Unknown]
  - Blood calcium abnormal [Unknown]
  - Renal function test abnormal [Unknown]
  - Liver function test abnormal [Unknown]
  - Fatigue [Unknown]
  - Blood pressure decreased [Recovering/Resolving]
  - Intra-abdominal fluid collection [Unknown]
  - Temperature intolerance [Unknown]
  - Muscle spasms [Unknown]
  - Seasonal allergy [Unknown]
  - Weight decreased [Unknown]
  - Wrong technique in product usage process [Unknown]
